FAERS Safety Report 9405304 (Version 1)
Quarter: 2013Q3

REPORT INFORMATION
  Report Type: Spontaneous
  Country: IT (occurrence: IT)
  Receive Date: 20130717
  Receipt Date: 20130717
  Transmission Date: 20140515
  Serious: Yes (Other)
  Sender: FDA-Public Use
  Company Number: IT-TEVA-418193ISR

PATIENT
  Age: 60 Year
  Sex: Female
  Weight: 47 kg

DRUGS (5)
  1. PACLITAXEL TEVA [Suspect]
     Indication: BREAST CANCER
     Dosage: 128.7 MILLIGRAM DAILY;
     Route: 042
     Dates: start: 20130502, end: 20130521
  2. AVASTIN [Suspect]
     Indication: BREAST CANCER
     Dosage: 470 MILLIGRAM DAILY;
     Route: 042
     Dates: start: 20130502, end: 20130521
  3. SOLDESAM [Concomitant]
     Dosage: 8 MILLIGRAM DAILY;
     Route: 042
     Dates: start: 20130502, end: 20130521
  4. ONDANSETRONE HIKMA [Concomitant]
     Dosage: 8 MILLIGRAM DAILY;
     Route: 042
     Dates: start: 20130502, end: 20130521
  5. RANIDIL [Concomitant]
     Dosage: 50 MILLIGRAM DAILY;
     Route: 042
     Dates: start: 20130502, end: 20130521

REACTIONS (2)
  - Chest pain [Unknown]
  - Sensory loss [Unknown]
